FAERS Safety Report 7170272-1 (Version None)
Quarter: 2010Q4

REPORT INFORMATION
  Report Type: 
  Country: None (occurrence: None)
  Receive Date: 20101217
  Receipt Date: 20101213
  Transmission Date: 20110411
  Serious: Yes (Hospitalization)
  Sender: FDA-Public Use
  Company Number: GB-PFIZER INC-2010171126

PATIENT
  Age: 73 Year
  Sex: Male

DRUGS (13)
  1. LANSOPRAZOLE [Suspect]
  2. METRONIDAZOLE [Suspect]
  3. PARACETAMOL [Suspect]
     Dosage: 1 G, 4X/DAY
  4. SIMVASTATIN [Suspect]
     Dosage: 20 MG, UNK
     Route: 048
  5. TAZOCIN [Suspect]
     Dosage: 4.5 G, 3X/DAY
  6. BENDROFLUMETHIAZIDE [Suspect]
     Dosage: 2.5 MG, UNK
     Route: 048
  7. OMACOR [Suspect]
     Dosage: 1000 MG, UNK
     Route: 048
  8. OMEPRAZOLE [Suspect]
     Dosage: 40 MG, 1X/DAY
  9. ACETYLSALICYLIC ACID [Concomitant]
     Dosage: 75 MG, UNK
     Route: 048
  10. BECLOMETASONE [Concomitant]
     Dosage: 250 UG, 2X/DAY
  11. CLEXANE [Concomitant]
     Dosage: 40 MG, 1X/DAY
     Route: 058
  12. FELODIPINE [Concomitant]
     Dosage: 2.5 MG, 1X/DAY
     Route: 048
  13. FLUTICASONE [Concomitant]
     Dosage: 27.5 UG, UNK

REACTIONS (2)
  - JAUNDICE [None]
  - LIVER FUNCTION TEST ABNORMAL [None]
